FAERS Safety Report 20207793 (Version 1)
Quarter: 2021Q4

REPORT INFORMATION
  Report Type: Spontaneous
  Country: US (occurrence: US)
  Receive Date: 20211220
  Receipt Date: 20211220
  Transmission Date: 20220303
  Serious: Yes (Other)
  Sender: FDA-Public Use
  Company Number: US-PFIZER INC-202101732667

PATIENT
  Age: 86 Year
  Sex: Male

DRUGS (1)
  1. VYNDAMAX [Suspect]
     Active Substance: TAFAMIDIS
     Indication: Amyloidosis
     Dosage: 61 MG

REACTIONS (30)
  - Syncope [Unknown]
  - Brain contusion [Unknown]
  - Seizure [Unknown]
  - Craniocerebral injury [Unknown]
  - Generalised tonic-clonic seizure [Unknown]
  - Cardiac failure congestive [Unknown]
  - Hypertensive nephropathy [Unknown]
  - Chronic kidney disease [Unknown]
  - Atrial fibrillation [Unknown]
  - Bradycardia [Unknown]
  - Hyperkalaemia [Unknown]
  - Urinary retention [Unknown]
  - Gastric ulcer [Unknown]
  - Cardiomyopathy [Unknown]
  - Pacemaker syndrome [Unknown]
  - Hemiparesis [Unknown]
  - Carpal tunnel syndrome [Unknown]
  - Hypertension [Unknown]
  - Atrial flutter [Unknown]
  - Bundle branch block left [Unknown]
  - Vitamin D deficiency [Unknown]
  - Benign prostatic hyperplasia [Unknown]
  - Arthritis [Unknown]
  - Skin laceration [Unknown]
  - Hyperlipidaemia [Unknown]
  - Generalised oedema [Unknown]
  - Hyponatraemia [Unknown]
  - Iron deficiency anaemia [Unknown]
  - Troponin I increased [Unknown]
  - Fall [Unknown]
